FAERS Safety Report 9172897 (Version 1)
Quarter: 2013Q1

REPORT INFORMATION
  Report Type: Spontaneous
  Country: US (occurrence: US)
  Receive Date: 20130319
  Receipt Date: 20130319
  Transmission Date: 20140127
  Serious: Yes (Hospitalization)
  Sender: FDA-Public Use
  Company Number: US-BRISTOL-MYERS SQUIBB COMPANY-17405457

PATIENT
  Sex: Female

DRUGS (23)
  1. COUMADIN TABS [Suspect]
     Dosage: DOSE:7.5MG?10MG IS SPLITTED TO HALF AND THEN THAT HALF TO ANOTHER HALF
     Route: 048
  2. LASIX [Concomitant]
     Dosage: PO
     Route: 042
  3. LOVENOX [Concomitant]
     Route: 058
  4. MAG-OX [Concomitant]
     Dosage: 1DF:400MG -800MG
     Route: 048
  5. MUCINEX [Concomitant]
     Route: 048
  6. ZITHROMAX [Concomitant]
     Dosage: ALSO 250MG/D
     Route: 042
  7. ROCEPHIN [Concomitant]
     Route: 042
  8. PREDNISONE [Concomitant]
     Route: 048
  9. PRILOSEC [Concomitant]
     Route: 048
  10. SOLU-MEDROL [Concomitant]
     Dosage: ALSO TOOK 40 MG Q8H
     Route: 042
  11. SPIRIVA [Concomitant]
     Dosage: 1DF:1 CAPS
     Route: 055
  12. TYLENOL [Concomitant]
     Dosage: 1DF:325MG-650MG
     Route: 048
  13. ADVAIR [Concomitant]
     Dosage: 1DF:250/50 UNIT NOS
     Route: 055
  14. ALBUTEROL [Concomitant]
  15. ATIVAN [Concomitant]
  16. CARDIZEM [Concomitant]
     Route: 048
  17. CEFTRIAXONE [Concomitant]
  18. COREG [Concomitant]
  19. COZAAR [Concomitant]
  20. DIFLUCAN [Concomitant]
  21. FOLIC ACID [Concomitant]
  22. IMODIUM [Concomitant]
  23. KAOCHLOR [Concomitant]

REACTIONS (1)
  - Chronic obstructive pulmonary disease [Unknown]
